FAERS Safety Report 6187247-1 (Version None)
Quarter: 2009Q2

REPORT INFORMATION
  Report Type: 
  Country: None (occurrence: None)
  Receive Date: 20090512
  Receipt Date: 20090507
  Transmission Date: 20091009
  Serious: Yes (Other)
  Sender: FDA-Public Use
  Company Number: PHHY2009JP17512

PATIENT
  Age: 74 Year
  Sex: Female

DRUGS (2)
  1. VOLTAREN [Suspect]
     Indication: ARTHRALGIA
     Dosage: UNK
  2. TAKEPRON [Concomitant]
     Indication: GASTRITIS

REACTIONS (2)
  - COLITIS COLLAGENOUS [None]
  - DIARRHOEA [None]
